FAERS Safety Report 13044403 (Version 1)
Quarter: 2016Q4

REPORT INFORMATION
  Report Type: Spontaneous
  Country: US (occurrence: US)
  Receive Date: 20161219
  Receipt Date: 20161219
  Transmission Date: 20170207
  Serious: Yes (Hospitalization, Other)
  Sender: FDA-Public Use
  Company Number: None

PATIENT
  Age: 69 Year
  Sex: Female
  Weight: 66.6 kg

DRUGS (5)
  1. ATORVASTATIN [Concomitant]
     Active Substance: ATORVASTATIN
  2. WARFARIN [Concomitant]
     Active Substance: WARFARIN
  3. VITAMIN D3 [Concomitant]
     Active Substance: CHOLECALCIFEROL
  4. METOPROLOL. [Concomitant]
     Active Substance: METOPROLOL
  5. SYNTHROID [Suspect]
     Active Substance: LEVOTHYROXINE SODIUM
     Indication: HYPOTHYROIDISM
     Dosage: ?          OTHER STRENGTH:MCG;QUANTITY:1 TABLET(S);?
     Route: 048
     Dates: start: 20160907, end: 20161216

REACTIONS (9)
  - Dyspnoea [None]
  - Tachycardia [None]
  - Atrial fibrillation [None]
  - Vision blurred [None]
  - Product quality issue [None]
  - Drug ineffective [None]
  - Dizziness [None]
  - Transient ischaemic attack [None]
  - Nausea [None]

NARRATIVE: CASE EVENT DATE: 20161202
